FAERS Safety Report 5307155-5 (Version None)
Quarter: 2007Q2

REPORT INFORMATION
  Report Type: 
  Country: None (occurrence: None)
  Receive Date: 20070425
  Receipt Date: 20070119
  Transmission Date: 20071010
  Serious: No
  Sender: FDA-Public Use
  Company Number: US-AMGEN-US207611

PATIENT
  Sex: Male
  Weight: 73.1 kg

DRUGS (1)
  1. VECTIBIX [Suspect]
     Indication: COLORECTAL CANCER
     Route: 042
     Dates: start: 20061205

REACTIONS (3)
  - DIPLOPIA [None]
  - PAPILLOEDEMA [None]
  - RASH [None]
